FAERS Safety Report 15014469 (Version 2)
Quarter: 2018Q2

REPORT INFORMATION
  Report Type: Report from Study
  Country: FR (occurrence: FR)
  Receive Date: 20180615
  Receipt Date: 20180626
  Transmission Date: 20180711
  Serious: Yes (Hospitalization)
  Sender: FDA-Public Use
  Company Number: FR-ROCHE-2138246

PATIENT
  Age: 72 Year
  Sex: Male
  Weight: 73 kg

DRUGS (2)
  1. VEMURAFENIB. [Suspect]
     Active Substance: VEMURAFENIB
     Indication: NEOPLASM MALIGNANT
     Dosage: FORM AS PER PROTOCOL?DATE OF LAST DOSE OF VEMURAFENIB (960 MG) PRIOR TO SAE ON 08/JUN/2018?SAE CYCLE
     Route: 048
     Dates: start: 20160606
  2. DECAPEPTYL [Concomitant]
     Active Substance: TRIPTORELIN

REACTIONS (1)
  - Dyspnoea [Not Recovered/Not Resolved]

NARRATIVE: CASE EVENT DATE: 20180604
